FAERS Safety Report 21541928 (Version 1)
Quarter: 2022Q4

REPORT INFORMATION
  Report Type: Spontaneous
  Country: US (occurrence: US)
  Receive Date: 20221102
  Receipt Date: 20221102
  Transmission Date: 20230112
  Serious: Yes (Other)
  Sender: FDA-Public Use
  Company Number: US-BRISTOL-MYERS SQUIBB COMPANY-2022-129881

PATIENT
  Age: 79 Year
  Sex: Female
  Weight: 49.9 kg

DRUGS (1)
  1. REVLIMID [Suspect]
     Active Substance: LENALIDOMIDE
     Indication: Plasma cell myeloma
     Dosage: DOSE: 10 MG; FREQ: 21 DAYS THEN 7 DAYS OFF
     Route: 048
     Dates: start: 2022

REACTIONS (4)
  - Pain [Unknown]
  - Fatigue [Unknown]
  - Drug ineffective [Unknown]
  - Mobility decreased [Unknown]
